FAERS Safety Report 18066167 (Version 1)
Quarter: 2020Q3

REPORT INFORMATION
  Report Type: Spontaneous
  Country: US (occurrence: US)
  Receive Date: 20200724
  Receipt Date: 20200724
  Transmission Date: 20201103
  Serious: No
  Sender: FDA-Public Use
  Company Number: None

PATIENT
  Age: 75 Year
  Sex: Female
  Weight: 100.8 kg

DRUGS (22)
  1. VALSARTAN 80MG [Concomitant]
     Active Substance: VALSARTAN
  2. TRICOR 145MG [Concomitant]
  3. ASPIRIN 81MG [Concomitant]
     Active Substance: ASPIRIN
  4. HYDROXYZINE 25MG [Concomitant]
  5. METFORMIN [Concomitant]
     Active Substance: METFORMIN HYDROCHLORIDE
  6. CARVEDILOL 3.125MG [Concomitant]
     Active Substance: CARVEDILOL
  7. ROPINIROLE 1MG [Concomitant]
  8. VITAMIN D3 [Concomitant]
     Active Substance: CHOLECALCIFEROL
  9. HYDROCODONE?APAP 5?325MG [Concomitant]
  10. ACETAMINOPHEN 325MG [Concomitant]
  11. ALKA?SELTZER [Concomitant]
     Active Substance: ANHYDROUS CITRIC ACID\ASPIRIN\SODIUM BICARBONATE
  12. LANTUS SOLOSTAR 100UNITS/ML [Concomitant]
  13. LETROZOLE 2.5MG [Concomitant]
     Active Substance: LETROZOLE
  14. APIDRA SOLOSTAR 100UNITS/ML [Concomitant]
  15. IBRANCE [Suspect]
     Active Substance: PALBOCICLIB
     Indication: BREAST CANCER
     Route: 048
     Dates: start: 20190524, end: 20200724
  16. BISACODYL EC 5MG [Concomitant]
  17. ARMOUR THYROID [Concomitant]
     Active Substance: THYROID, PORCINE
  18. CYMBALTA [Concomitant]
     Active Substance: DULOXETINE HYDROCHLORIDE
  19. OMEPRAZOLE 20MG [Concomitant]
     Active Substance: OMEPRAZOLE
  20. MAGNESIUM [Concomitant]
     Active Substance: MAGNESIUM
  21. FLECTOR 1.3% [Concomitant]
  22. EX?LAX REGULAR STRENGTH STIMULANT LAXATIVE [Concomitant]
     Active Substance: SENNOSIDES

REACTIONS (1)
  - Blister [None]

NARRATIVE: CASE EVENT DATE: 20200724
